FAERS Safety Report 16848473 (Version 1)
Quarter: 2019Q3

REPORT INFORMATION
  Report Type: Spontaneous
  Country: IT (occurrence: IT)
  Receive Date: 20190925
  Receipt Date: 20190925
  Transmission Date: 20191005
  Serious: Yes (Hospitalization)
  Sender: FDA-Public Use
  Company Number: IT-B.I. PHARMACEUTICALS,INC./RIDGEFIELD-2019-BI-103545

PATIENT
  Age: 56 Year
  Sex: Male

DRUGS (4)
  1. SPIRIVA [Suspect]
     Active Substance: TIOTROPIUM BROMIDE MONOHYDRATE
     Indication: ASTHMA
     Dosage: 2.5 UG SOFT MIST INHALER
     Route: 055
  2. BECLOMETASONE;FORMOTEROL [Concomitant]
     Active Substance: BECLOMETHASONE\FORMOTEROL
     Indication: PRODUCT USED FOR UNKNOWN INDICATION
     Dosage: METERED-DOSE INHALER 100/6 UG, TWO DAILY INHALATIONS, AS NEEDED (TWICE A DAY ON AN AVERAGE)
     Route: 055
  3. DUPILUMAB [Suspect]
     Active Substance: DUPILUMAB
     Indication: ASTHMA
     Route: 058
     Dates: start: 201607
  4. SALBUTAMOL [Concomitant]
     Active Substance: ALBUTEROL
     Indication: PRODUCT USED FOR UNKNOWN INDICATION
     Route: 055

REACTIONS (2)
  - Asthma [Recovered/Resolved]
  - Eosinophilic pneumonia chronic [Recovered/Resolved]
